FAERS Safety Report 7898968-4 (Version None)
Quarter: 2011Q4

REPORT INFORMATION
  Report Type: 
  Country: None (occurrence: None)
  Receive Date: 20111107
  Receipt Date: 20111031
  Transmission Date: 20120403
  Serious: Yes (Life-Threatening, Hospitalization, Other)
  Sender: FDA-Public Use
  Company Number: US-ASTRAZENECA-2011SE65641

PATIENT
  Age: 46 Year
  Sex: Male
  Weight: 97.5 kg

DRUGS (10)
  1. SEROQUEL XR [Suspect]
     Indication: BIPOLAR DISORDER
     Route: 048
  2. SEROQUEL XR [Suspect]
     Indication: DEPRESSION
     Route: 048
  3. TOPAMAX [Concomitant]
     Indication: MIGRAINE
  4. SEROQUEL XR [Suspect]
     Indication: INSOMNIA
     Route: 048
  5. METHADONE HCL [Concomitant]
  6. SEROQUEL XR [Suspect]
     Route: 048
  7. CLONIPINE [Concomitant]
     Dosage: 1 MG, THREE TIMES A DAY
  8. SEROQUEL XR [Suspect]
     Route: 048
  9. SEROQUEL XR [Suspect]
     Route: 048
  10. OXYCODONE HCL [Concomitant]
     Indication: PAIN

REACTIONS (9)
  - INSOMNIA [None]
  - CROHN'S DISEASE [None]
  - ROAD TRAFFIC ACCIDENT [None]
  - DRUG DOSE OMISSION [None]
  - DRUG PRESCRIBING ERROR [None]
  - HAEMORRHAGE [None]
  - BACK PAIN [None]
  - DIABETIC COMA [None]
  - ANXIETY [None]
